FAERS Safety Report 8161710-6 (Version None)
Quarter: 2012Q1

REPORT INFORMATION
  Report Type: 
  Country: None (occurrence: None)
  Receive Date: 20120224
  Receipt Date: 20110120
  Transmission Date: 20120608
  Serious: No
  Sender: FDA-Public Use
  Company Number: US-BRISTOL-MYERS SQUIBB COMPANY-15505811

PATIENT
  Age: 80 Year
  Sex: Male

DRUGS (7)
  1. TERAZOSIN HCL [Concomitant]
  2. PAROXETINE [Concomitant]
  3. COUMADIN [Concomitant]
  4. SIMVASTATIN [Concomitant]
  5. METFORMIN HCL [Suspect]
     Indication: DIABETES MELLITUS
     Route: 048
     Dates: start: 20080101
  6. FINASTERIDE [Concomitant]
  7. ATENOLOL [Concomitant]

REACTIONS (1)
  - DIARRHOEA [None]
